FAERS Safety Report 19985262 (Version 1)
Quarter: 2021Q4

REPORT INFORMATION
  Report Type: Spontaneous
  Country: DE (occurrence: DE)
  Receive Date: 20211022
  Receipt Date: 20211022
  Transmission Date: 20220303
  Serious: Yes (Other)
  Sender: FDA-Public Use
  Company Number: DE-PBT-000511

PATIENT
  Age: 59 Year

DRUGS (2)
  1. TACROLIMUS [Suspect]
     Active Substance: TACROLIMUS
     Indication: Pulmonary sarcoidosis
     Dosage: 1-0-0
     Route: 065
  2. LEFLUNOMIDE [Suspect]
     Active Substance: LEFLUNOMIDE
     Indication: Pulmonary sarcoidosis
     Dosage: 1-0-0
     Route: 065

REACTIONS (2)
  - Melkersson-Rosenthal syndrome [Recovered/Resolved]
  - Product use in unapproved indication [Unknown]
